FAERS Safety Report 14420143 (Version 3)
Quarter: 2019Q2

REPORT INFORMATION
  Report Type: Report from Study
  Country: US (occurrence: US)
  Receive Date: 20180122
  Receipt Date: 20190620
  Transmission Date: 20190711
  Serious: Yes (Other)
  Sender: FDA-Public Use
  Company Number: US-ROCHE-1869116

PATIENT
  Age: 44 Year
  Sex: Female
  Weight: 83.54 kg

DRUGS (17)
  1. ESTRADIOL. [Concomitant]
     Active Substance: ESTRADIOL
     Indication: OFF LABEL USE
  2. CYMBALTA [Concomitant]
     Active Substance: DULOXETINE HYDROCHLORIDE
     Indication: PAIN
  3. RITUXAN [Suspect]
     Active Substance: RITUXIMAB
     Indication: RELAPSING-REMITTING MULTIPLE SCLEROSIS
     Route: 042
     Dates: start: 20151215, end: 20151215
  4. CYMBALTA [Concomitant]
     Active Substance: DULOXETINE HYDROCHLORIDE
     Indication: DEPRESSION
     Route: 065
  5. CYMBALTA [Concomitant]
     Active Substance: DULOXETINE HYDROCHLORIDE
     Indication: OFF LABEL USE
  6. SODIUM SULFACETAMIDE [Concomitant]
     Active Substance: SULFACETAMIDE SODIUM
     Indication: OFF LABEL USE
  7. SOOLANTRA [Concomitant]
     Active Substance: IVERMECTIN
     Indication: OFF LABEL USE
  8. RITUXAN [Suspect]
     Active Substance: RITUXIMAB
     Indication: OFF LABEL USE
     Route: 042
     Dates: start: 20151217, end: 20151217
  9. ZINBRYTA [Suspect]
     Active Substance: DACLIZUMAB
     Indication: MULTIPLE SCLEROSIS
     Route: 065
     Dates: start: 201710
  10. GABAPENTIN. [Concomitant]
     Active Substance: GABAPENTIN
     Indication: OFF LABEL USE
     Route: 065
  11. OCREVUS [Suspect]
     Active Substance: OCRELIZUMAB
     Indication: RELAPSING-REMITTING MULTIPLE SCLEROSIS
     Dosage: PATIENT HAD HER LAST TREATMENT OF OCRELIZUMAB ON 04/AUG/2018
     Route: 042
     Dates: start: 20171228, end: 20180804
  12. ZINBRYTA [Suspect]
     Active Substance: DACLIZUMAB
     Indication: OFF LABEL USE
  13. BACLOFEN. [Concomitant]
     Active Substance: BACLOFEN
     Indication: OFF LABEL USE
     Route: 065
  14. KEPPRA [Concomitant]
     Active Substance: LEVETIRACETAM
     Indication: OFF LABEL USE
  15. CYMBALTA [Concomitant]
     Active Substance: DULOXETINE HYDROCHLORIDE
     Indication: OFF LABEL USE
  16. NABUMETONE. [Concomitant]
     Active Substance: NABUMETONE
     Indication: OFF LABEL USE
  17. OCREVUS [Suspect]
     Active Substance: OCRELIZUMAB
     Indication: OFF LABEL USE

REACTIONS (8)
  - Uterine leiomyoma [Recovered/Resolved]
  - Intentional product use issue [Unknown]
  - Suicidal ideation [Recovered/Resolved]
  - Anaphylactic reaction [Recovered/Resolved]
  - Menstrual disorder [Recovered/Resolved]
  - Off label use [Unknown]
  - Cardiac failure [Not Recovered/Not Resolved]
  - Fatigue [Not Recovered/Not Resolved]

NARRATIVE: CASE EVENT DATE: 201611
